FAERS Safety Report 5130509-7 (Version None)
Quarter: 2006Q4

REPORT INFORMATION
  Report Type: 
  Country: None (occurrence: None)
  Receive Date: 20061019
  Receipt Date: 20061013
  Transmission Date: 20070319
  Serious: Yes (Other)
  Sender: FDA-Public Use
  Company Number: GB-GLAXOSMITHKLINE-B0442583A

PATIENT
  Age: 28 Year
  Sex: Female

DRUGS (5)
  1. LAMICTAL [Suspect]
     Indication: CONVULSION
     Dosage: 250MCG TWICE PER DAY
     Route: 048
     Dates: start: 20060302, end: 20060401
  2. LACTULOSE [Concomitant]
     Indication: CONSTIPATION
     Route: 048
  3. MIDAZOLAM HCL [Concomitant]
     Indication: CONVULSION
     Route: 048
  4. SENNA [Concomitant]
     Indication: CONSTIPATION
     Route: 048
  5. TEGRETOL [Concomitant]
     Indication: CONVULSION
     Dosage: 700MG TWICE PER DAY
     Route: 048

REACTIONS (5)
  - ABNORMAL BEHAVIOUR [None]
  - AGGRESSION [None]
  - ANGER [None]
  - CELLULITIS [None]
  - SELF MUTILATION [None]
